FAERS Safety Report 7556522-8 (Version None)
Quarter: 2011Q2

REPORT INFORMATION
  Report Type: 
  Country: None (occurrence: None)
  Receive Date: 20110609
  Receipt Date: 20110531
  Transmission Date: 20111010
  Serious: Yes (Other)
  Sender: FDA-Public Use
  Company Number: 2011SP016637

PATIENT
  Age: 54 Year
  Sex: Male
  Weight: 76 kg

DRUGS (4)
  1. TEMODAL [Suspect]
     Indication: GLIOBLASTOMA
     Dosage: 375 MG/M2; QD;
     Dates: start: 20110404, end: 20110407
  2. KEPPRA [Concomitant]
  3. POTASSIUM CHLORIDE [Concomitant]
  4. FOLIC ACID [Concomitant]

REACTIONS (4)
  - BACTERAEMIA [None]
  - ACCIDENTAL OVERDOSE [None]
  - FEBRILE BONE MARROW APLASIA [None]
  - BRONCHOPULMONARY ASPERGILLOSIS [None]
